FAERS Safety Report 13768009 (Version 7)
Quarter: 2020Q2

REPORT INFORMATION
  Report Type: Spontaneous
  Country: US (occurrence: US)
  Receive Date: 20170719
  Receipt Date: 20200518
  Transmission Date: 20200713
  Serious: Yes (Other)
  Sender: FDA-Public Use
  Company Number: US-PFIZER INC-2016286316

PATIENT
  Age: 65 Year
  Sex: Male

DRUGS (7)
  1. XELJANZ [Suspect]
     Active Substance: TOFACITINIB CITRATE
     Dosage: 7.5 MG, DAILY (PATIENT IS TAKING 2.5MG TABLETS IN THE MORNING AND ONE 5MG TABLET IN THE EVENING)
  2. XELJANZ [Suspect]
     Active Substance: TOFACITINIB CITRATE
     Dosage: 15 MG, DAILY (2 TABLETS IN THE MORNING AND 1 TABLET IN THE EVENING)
  3. XELJANZ [Suspect]
     Active Substance: TOFACITINIB CITRATE
     Indication: CROHN^S DISEASE
     Dosage: 10 MG, 2X/DAY (4 TABLETS [2 IN MORNING AND 2 IN EVENING])
     Route: 048
     Dates: start: 2014
  4. XELJANZ [Suspect]
     Active Substance: TOFACITINIB CITRATE
     Indication: ARTHRALGIA
     Dosage: 10 MG, 2X/DAY (4 TABLETS [2 IN MORNING AND 2 IN EVENING])
     Route: 048
  5. XELJANZ [Suspect]
     Active Substance: TOFACITINIB CITRATE
     Dosage: 5 MG, 3X/DAY
  6. XELJANZ [Suspect]
     Active Substance: TOFACITINIB CITRATE
     Dosage: 5 MG, UNK
  7. XELJANZ [Suspect]
     Active Substance: TOFACITINIB CITRATE
     Dosage: 15 MG, DAILY (XELJANZ 5MG 2 IN THE MORNING AND 1 AT NIGHT.)

REACTIONS (7)
  - Product use in unapproved indication [Unknown]
  - Hip fracture [Unknown]
  - Fall [Unknown]
  - Wrist fracture [Unknown]
  - Drug effective for unapproved indication [Unknown]
  - Off label use [Unknown]
  - Intentional product misuse [Unknown]

NARRATIVE: CASE EVENT DATE: 2014
